FAERS Safety Report 4300939-1 (Version None)
Quarter: 2004Q1

REPORT INFORMATION
  Report Type: 
  Country: None (occurrence: None)
  Receive Date: 20040219
  Receipt Date: 20040206
  Transmission Date: 20041129
  Serious: Yes (Disabling)
  Sender: FDA-Public Use
  Company Number: 2004SE00640

PATIENT
  Age: 73 Year
  Sex: Female

DRUGS (5)
  1. BLOPRESS [Suspect]
     Indication: HYPERTENSION
     Dosage: 8 MG DAILY PO
     Dates: start: 20020520, end: 20040202
  2. PRAVASTATIN SODIUM [Concomitant]
  3. ETHYL ICOSAPENTATE [Concomitant]
  4. JUVELA NICOTINATE [Concomitant]
  5. MAGNESIUM HYDROXIDE TAB [Concomitant]

REACTIONS (3)
  - CARDIAC FAILURE [None]
  - INTERSTITIAL LUNG DISEASE [None]
  - LUNG NEOPLASM MALIGNANT [None]
